FAERS Safety Report 8984166 (Version 1)
Quarter: 2012Q4

REPORT INFORMATION
  Report Type: 
  Country: IT (occurrence: IT)
  Receive Date: 20121226
  Receipt Date: 20121226
  Transmission Date: 20130627
  Serious: Yes (Other)
  Sender: FDA-Public Use
  Company Number: IT-PFIZER INC-2012325292

PATIENT
  Age: 56 Year
  Sex: Female

DRUGS (2)
  1. TAVOR [Suspect]
     Indication: ANXIETY
     Dosage: 25 mg(10 posological units), single
     Route: 048
     Dates: start: 20121213, end: 20121213
  2. XANAX [Suspect]
     Indication: ANXIETY
     Dosage: 10 DF, single
     Route: 048
     Dates: start: 20121213, end: 20121213

REACTIONS (2)
  - Drug abuse [Recovering/Resolving]
  - Intentional self-injury [Recovering/Resolving]
